FAERS Safety Report 4696098-6 (Version None)
Quarter: 2005Q2

REPORT INFORMATION
  Report Type: 
  Country: None (occurrence: None)
  Receive Date: 20050608
  Receipt Date: 20040817
  Transmission Date: 20051028
  Serious: Yes (Other)
  Sender: FDA-Public Use
  Company Number: 378050

PATIENT

DRUGS (2)
  1. ACCUTANE [Suspect]
     Dosage: ORAL
     Route: 048
     Dates: start: 20031002, end: 20040415
  2. ISOTRETINOIN [Suspect]
     Dosage: ORAL
     Route: 048
     Dates: start: 20040115, end: 20040215

REACTIONS (1)
  - DRUG EXPOSURE DURING PREGNANCY [None]
